FAERS Safety Report 10179917 (Version 1)
Quarter: 2014Q2

REPORT INFORMATION
  Report Type: Spontaneous
  Country: US (occurrence: US)
  Receive Date: 20140519
  Receipt Date: 20140519
  Transmission Date: 20141212
  Serious: No
  Sender: FDA-Public Use
  Company Number: US-AMGEN INC.-USASP2013071736

PATIENT
  Age: 86 Year
  Sex: Female

DRUGS (8)
  1. PROLIA [Suspect]
     Indication: PRODUCT USED FOR UNKNOWN INDICATION
     Dosage: UNK
     Route: 065
  2. CALCIUM [Concomitant]
  3. VITAMIN D                          /00107901/ [Concomitant]
  4. BENICAR [Concomitant]
  5. LIPITOR [Concomitant]
  6. CITALOPRAM [Concomitant]
  7. MAGNESIUM [Concomitant]
  8. PROBIOTIC                          /06395501/ [Concomitant]

REACTIONS (2)
  - Injection site pain [Recovered/Resolved]
  - Malaise [Recovered/Resolved]
